FAERS Safety Report 14166888 (Version 4)
Quarter: 2017Q4

REPORT INFORMATION
  Report Type: Report from Study
  Country: NL (occurrence: NL)
  Receive Date: 20171107
  Receipt Date: 20171127
  Transmission Date: 20180321
  Serious: Yes (Hospitalization)
  Sender: FDA-Public Use
  Company Number: NL-B.I. PHARMACEUTICALS,INC./RIDGEFIELD-2017-BI-058826

PATIENT
  Age: 63 Year
  Sex: Male
  Weight: 122 kg

DRUGS (4)
  1. CEFTAZIDIME. [Concomitant]
     Active Substance: CEFTAZIDIME
     Indication: PRODUCT USED FOR UNKNOWN INDICATION
     Route: 042
     Dates: start: 20171026, end: 20171102
  2. IPRAMOL [Concomitant]
     Active Substance: ALBUTEROL SULFATE\IPRATROPIUM BROMIDE
     Indication: PRODUCT USED FOR UNKNOWN INDICATION
     Route: 055
     Dates: start: 20171030, end: 20171102
  3. VARGATEF [Suspect]
     Active Substance: NINTEDANIB
     Indication: LUNG ADENOCARCINOMA STAGE IV
     Route: 048
     Dates: start: 20171020, end: 20171027
  4. AMOXICILLINE [Concomitant]
     Active Substance: AMOXICILLIN
     Indication: PRODUCT USED FOR UNKNOWN INDICATION
     Route: 042
     Dates: start: 20171026, end: 20171102

REACTIONS (3)
  - Pneumonia [Recovered/Resolved]
  - Febrile neutropenia [Recovered/Resolved]
  - Pulmonary embolism [Recovered/Resolved]

NARRATIVE: CASE EVENT DATE: 20171026
